FAERS Safety Report 8863269 (Version 1)
Quarter: 2012Q4

REPORT INFORMATION
  Report Type: 
  Country: DE (occurrence: DE)
  Receive Date: 20121025
  Receipt Date: 20121025
  Transmission Date: 20130627
  Serious: Yes (Other)
  Sender: FDA-Public Use
  Company Number: DE-JNJFOC-20121008948

PATIENT
  Age: 39 Year
  Sex: Male
  Weight: 67 kg

DRUGS (9)
  1. REMICADE [Suspect]
     Indication: CROHN^S DISEASE
     Route: 042
     Dates: start: 20111214
  2. REMICADE [Suspect]
     Indication: CROHN^S DISEASE
     Route: 042
     Dates: start: 20121010
  3. UNKNOWN MEDICATION [Interacting]
     Indication: PRODUCT USED FOR UNKNOWN INDICATION
     Route: 065
  4. PANTOZOL [Concomitant]
     Indication: GASTRIC DISORDER
     Route: 065
     Dates: start: 20111214
  5. MIRTAZAPINE [Concomitant]
     Indication: DEPRESSION
     Route: 065
     Dates: start: 20121009
  6. VIGANTOLETTEN [Concomitant]
     Indication: VITAMIN D DEFICIENCY
     Dosage: 1000 IE
     Route: 065
     Dates: start: 20111214
  7. METHYLPREDNISOLON [Concomitant]
     Indication: PREMEDICATION
     Route: 065
     Dates: start: 20121010
  8. TAVEGIL [Concomitant]
     Indication: PREMEDICATION
     Route: 065
     Dates: start: 20121010
  9. VITAMIN B12 [Concomitant]
     Dosage: 1000 IE
     Route: 065
     Dates: start: 20111214

REACTIONS (9)
  - Infusion related reaction [Recovered/Resolved]
  - Flushing [Recovered/Resolved]
  - Face oedema [Recovered/Resolved]
  - Dyspnoea [Recovered/Resolved]
  - Pruritus [Recovered/Resolved]
  - Burning sensation [Recovered/Resolved]
  - Drug interaction [Recovered/Resolved]
  - Headache [Recovered/Resolved]
  - Rash [Recovered/Resolved]
